FAERS Safety Report 22394884 (Version 1)
Quarter: 2023Q2

REPORT INFORMATION
  Report Type: Report from Study
  Country: AE (occurrence: AE)
  Receive Date: 20230601
  Receipt Date: 20230601
  Transmission Date: 20230722
  Serious: Yes (Hospitalization, Other)
  Sender: FDA-Public Use
  Company Number: AE-GSK-US2023GSK009347

PATIENT

DRUGS (3)
  1. SOTROVIMAB [Suspect]
     Active Substance: SOTROVIMAB
     Indication: COVID-19
     Dosage: 500 MG/ 8 ML
     Route: 042
     Dates: start: 20220726
  2. ATORVASTATIN [Concomitant]
     Active Substance: ATORVASTATIN
     Indication: Dyslipidaemia
     Dosage: 40 MG, QD
     Route: 048
     Dates: start: 20220906, end: 20220910
  3. AMLODIPINE + HYDROCHLOROTHIAZIDE + VALSARTAN [Concomitant]
     Indication: Hypertension
     Dosage: 160-12.5-10 MG
     Route: 048
     Dates: start: 20220906, end: 20220910

REACTIONS (1)
  - Acute myocardial infarction [Recovered/Resolved]

NARRATIVE: CASE EVENT DATE: 20220906
